FAERS Safety Report 5731330-9 (Version None)
Quarter: 2008Q2

REPORT INFORMATION
  Report Type: 
  Country: None (occurrence: None)
  Receive Date: 20080508
  Receipt Date: 20080430
  Transmission Date: 20081010
  Serious: Yes (Death, Life-Threatening, Hospitalization)
  Sender: FDA-Public Use
  Company Number: GB-RANBAXY-2008RR-13560

PATIENT

DRUGS (1)
  1. ACETAMINOPHEN [Suspect]
     Dosage: 16-62 G, UNK
     Route: 048

REACTIONS (4)
  - ACUTE HEPATIC FAILURE [None]
  - GRAFT DYSFUNCTION [None]
  - MULTI-ORGAN FAILURE [None]
  - OVERDOSE [None]
